FAERS Safety Report 15053819 (Version 1)
Quarter: 2018Q2

REPORT INFORMATION
  Report Type: Report from Study
  Country: US (occurrence: US)
  Receive Date: 20180622
  Receipt Date: 20180622
  Transmission Date: 20180711
  Serious: No
  Sender: FDA-Public Use
  Company Number: US-AMGEN-USASL2016053324

PATIENT
  Age: 37 Year
  Sex: Female

DRUGS (1)
  1. NPLATE [Suspect]
     Active Substance: ROMIPLOSTIM
     Indication: IMMUNE THROMBOCYTOPENIC PURPURA
     Dosage: 10 MUG/KG, QWK
     Route: 065
     Dates: start: 201509

REACTIONS (8)
  - Condition aggravated [Unknown]
  - Decreased appetite [Unknown]
  - Injection site pain [Unknown]
  - Drug dose omission [Unknown]
  - Platelet count abnormal [Unknown]
  - Migraine [Unknown]
  - Bone pain [Unknown]
  - Headache [Unknown]

NARRATIVE: CASE EVENT DATE: 201509
